FAERS Safety Report 6245038-7 (Version None)
Quarter: 2009Q2

REPORT INFORMATION
  Report Type: 
  Country: None (occurrence: None)
  Receive Date: 20090619
  Receipt Date: 20090120
  Transmission Date: 20091009
  Serious: Yes (Hospitalization)
  Sender: FDA-Public Use
  Company Number: 2009PL000062

PATIENT
  Age: 31 Year
  Sex: Male
  Weight: 52 kg

DRUGS (3)
  1. AZATHIOPRINE [Suspect]
     Indication: CROHN'S DISEASE
     Dosage: 100 MG;QD
     Dates: start: 20070105, end: 20070810
  2. INFLIXIMAB, RECOMBINANT (INFLIXIMAB, RECOMIBANT) LYOPHILIZED POWDER (N [Suspect]
     Indication: CROHN'S DISEASE
     Dosage: 270 MG;QD;IV
     Route: 042
     Dates: start: 20070105, end: 20070613
  3. ASPIRIN C [Concomitant]

REACTIONS (1)
  - HERPES ZOSTER [None]
